FAERS Safety Report 4931334-X (Version None)
Quarter: 2006Q1

REPORT INFORMATION
  Report Type: 
  Country: None (occurrence: None)
  Receive Date: 20060228
  Receipt Date: 20060215
  Transmission Date: 20060701
  Serious: No
  Sender: FDA-Public Use
  Company Number: 222179

PATIENT
  Age: 61 Year
  Sex: Female
  Weight: 84.1 kg

DRUGS (3)
  1. RAPTIVA [Suspect]
     Indication: PSORIASIS
     Dosage: 0.8 ML, 1/WEEK, SUBCUTANEOUS
     Route: 058
     Dates: start: 20051124
  2. RAPTIVA [Suspect]
  3. RAPTIVA [Suspect]

REACTIONS (1)
  - BREAST CANCER FEMALE [None]
